FAERS Safety Report 16789481 (Version 1)
Quarter: 2019Q3

REPORT INFORMATION
  Report Type: Report from Study
  Country: None (occurrence: US)
  Receive Date: 20190910
  Receipt Date: 20190910
  Transmission Date: 20191005
  Serious: Yes (Other)
  Sender: FDA-Public Use
  Company Number: US-ABBVIE-19K-163-2768043-00

PATIENT
  Age: 63 Year
  Sex: Female
  Weight: 118.95 kg

DRUGS (2)
  1. HUMIRA [Suspect]
     Active Substance: ADALIMUMAB
     Indication: RHEUMATOID ARTHRITIS
     Route: 058
     Dates: start: 20190402, end: 2019
  2. HUMIRA [Suspect]
     Active Substance: ADALIMUMAB
     Route: 058
     Dates: start: 20190510

REACTIONS (2)
  - Exostosis [Recovering/Resolving]
  - Tenoplasty [Recovering/Resolving]

NARRATIVE: CASE EVENT DATE: 20190425
